FAERS Safety Report 10041777 (Version 6)
Quarter: 2014Q2

REPORT INFORMATION
  Report Type: Spontaneous
  Country: US (occurrence: US)
  Receive Date: 20140327
  Receipt Date: 20140423
  Transmission Date: 20141212
  Serious: Yes (Hospitalization)
  Sender: FDA-Public Use
  Company Number: US-JNJFOC-20140313720

PATIENT
  Sex: Male

DRUGS (2)
  1. XARELTO [Suspect]
     Indication: ATRIAL FIBRILLATION
     Dosage: ABOUT 1 YEAR
     Route: 048
  2. XARELTO [Suspect]
     Indication: CEREBROVASCULAR ACCIDENT PROPHYLAXIS
     Dosage: ABOUT 1 YEAR
     Route: 048

REACTIONS (4)
  - Paralysis [Not Recovered/Not Resolved]
  - Haemorrhage intracranial [Unknown]
  - Cerebrovascular accident [Unknown]
  - Treatment noncompliance [Unknown]
